FAERS Safety Report 18917781 (Version 3)
Quarter: 2021Q1

REPORT INFORMATION
  Report Type: Spontaneous
  Country: ES (occurrence: ES)
  Receive Date: 20210219
  Receipt Date: 20210307
  Transmission Date: 20210420
  Serious: Yes (Other)
  Sender: FDA-Public Use
  Company Number: ES-ASTRAZENECA-2021A051473

PATIENT
  Age: 62 Year
  Sex: Female

DRUGS (1)
  1. IRESSA [Suspect]
     Active Substance: GEFITINIB
     Indication: LUNG ADENOCARCINOMA
     Route: 048
     Dates: end: 202009

REACTIONS (8)
  - Decreased appetite [Unknown]
  - Cough [Unknown]
  - Hair disorder [Unknown]
  - Metastases to central nervous system [Unknown]
  - Headache [Unknown]
  - Skin disorder [Unknown]
  - Nausea [Unknown]
  - Coordination abnormal [Unknown]
